FAERS Safety Report 9678421 (Version 2)
Quarter: 2013Q4

REPORT INFORMATION
  Report Type: Spontaneous
  Country: GB (occurrence: GB)
  Receive Date: 20131108
  Receipt Date: 20131121
  Transmission Date: 20140711
  Serious: Yes (Other)
  Sender: FDA-Public Use
  Company Number: GB-BIOMARINAP-GB-2013-101870

PATIENT
  Age: 5 Year
  Sex: Female
  Weight: 13.4 kg

DRUGS (2)
  1. ALDURAZYME [Suspect]
     Indication: MUCOPOLYSACCHARIDOSIS I
     Dosage: 1500 IU, QW
     Route: 042
     Dates: start: 20130411
  2. CHLORPHENAMINE MALEATE [Concomitant]
     Indication: PREMEDICATION

REACTIONS (2)
  - Wheezing [Recovered/Resolved]
  - Throat irritation [Recovered/Resolved]
